FAERS Safety Report 21248628 (Version 1)
Quarter: 2022Q3

REPORT INFORMATION
  Report Type: Report from Study
  Country: BR (occurrence: BR)
  Receive Date: 20220824
  Receipt Date: 20220824
  Transmission Date: 20221026
  Serious: Yes (Other)
  Sender: FDA-Public Use
  Company Number: BR-NOVARTISPH-NVSC2022BR189024

PATIENT
  Sex: Female

DRUGS (2)
  1. METHYLPHENIDATE HYDROCHLORIDE [Suspect]
     Active Substance: METHYLPHENIDATE HYDROCHLORIDE
     Indication: Product used for unknown indication
     Dosage: UNK
     Route: 065
  2. METHYLPHENIDATE HYDROCHLORIDE [Suspect]
     Active Substance: METHYLPHENIDATE HYDROCHLORIDE
     Indication: Attention deficit hyperactivity disorder
     Dosage: 10 MG
     Route: 065

REACTIONS (14)
  - Thrombosis [Recovered/Resolved]
  - Mood swings [Recovered/Resolved]
  - Stress [Recovered/Resolved]
  - Limb discomfort [Recovered/Resolved]
  - Limb injury [Recovered/Resolved]
  - Abnormal behaviour [Recovered/Resolved]
  - Behaviour disorder [Recovered/Resolved]
  - Drug intolerance [Recovered/Resolved]
  - Therapeutic product effect incomplete [Recovered/Resolved]
  - Arthralgia [Recovered/Resolved]
  - Agitation [Recovered/Resolved]
  - Anxiety [Recovered/Resolved]
  - Headache [Recovered/Resolved]
  - Drug ineffective [Recovered/Resolved]
